FAERS Safety Report 13556082 (Version 1)
Quarter: 2017Q2

REPORT INFORMATION
  Report Type: Spontaneous
  Country: US (occurrence: US)
  Receive Date: 20170517
  Receipt Date: 20170517
  Transmission Date: 20170830
  Serious: No
  Sender: FDA-Public Use
  Company Number: US-SA-2016SA200557

PATIENT
  Age: 37 Year
  Sex: Female

DRUGS (4)
  1. TOUJEO [Suspect]
     Active Substance: INSULIN GLARGINE
     Indication: TYPE 2 DIABETES MELLITUS
     Dosage: DOSE:24 UNIT(S)
     Route: 065
     Dates: start: 201610
  2. LANTUS SOLOSTAR [Concomitant]
     Active Substance: INSULIN GLARGINE
     Dosage: DOSE:20 UNIT(S)
  3. SOLOSTAR [Concomitant]
     Active Substance: DEVICE
  4. SOLOSTAR [Concomitant]
     Active Substance: DEVICE
     Dates: start: 201610

REACTIONS (6)
  - Blood glucose decreased [Unknown]
  - Injection site pain [Unknown]
  - Dizziness [Unknown]
  - Blood glucose increased [Unknown]
  - Feeling jittery [Unknown]
  - Vomiting [Unknown]

NARRATIVE: CASE EVENT DATE: 201610
